FAERS Safety Report 19168802 (Version 1)
Quarter: 2021Q2

REPORT INFORMATION
  Report Type: Spontaneous
  Country: US (occurrence: US)
  Receive Date: 20210421
  Receipt Date: 20210421
  Transmission Date: 20210717
  Serious: Yes (Hospitalization)
  Sender: FDA-Public Use
  Company Number: None

PATIENT
  Sex: Male
  Weight: 82.2 kg

DRUGS (9)
  1. GLIMEPIRIDE. [Concomitant]
     Active Substance: GLIMEPIRIDE
  2. LOSARTAN. [Concomitant]
     Active Substance: LOSARTAN
  3. DURVALUMAB. [Suspect]
     Active Substance: DURVALUMAB
     Dates: end: 20210310
  4. ALBUTEROL. [Concomitant]
     Active Substance: ALBUTEROL
  5. BRILINTA [Concomitant]
     Active Substance: TICAGRELOR
  6. JANUVIA [Concomitant]
     Active Substance: SITAGLIPTIN PHOSPHATE
  7. ELIQUIS [Concomitant]
     Active Substance: APIXABAN
  8. ATORVASTATIN [Concomitant]
     Active Substance: ATORVASTATIN
  9. METOPROLOL. [Concomitant]
     Active Substance: METOPROLOL

REACTIONS (3)
  - Ascites [None]
  - Ischaemic hepatitis [None]
  - Pleural effusion [None]

NARRATIVE: CASE EVENT DATE: 20210330
